FAERS Safety Report 8257776-5 (Version None)
Quarter: 2012Q2

REPORT INFORMATION
  Report Type: 
  Country: None (occurrence: None)
  Receive Date: 20120404
  Receipt Date: 20120328
  Transmission Date: 20120825
  Serious: No
  Sender: FDA-Public Use
  Company Number: US-BIOGENIDEC-2012BI000863

PATIENT
  Sex: Female

DRUGS (5)
  1. TYSABRI [Suspect]
     Indication: MULTIPLE SCLEROSIS
     Route: 042
     Dates: start: 20090522, end: 20111201
  2. OXYTROL [Concomitant]
     Indication: URINARY INCONTINENCE
     Dates: start: 20090101
  3. NITROFURANTOIN MONOHYDRATE/MACROCRYSTALS [Concomitant]
     Indication: INCONTINENCE
     Route: 048
     Dates: start: 20111001
  4. TYSABRI [Suspect]
     Route: 042
     Dates: start: 20120101
  5. NITROFURANTOIN MONOHYDRATE/MACROCRYSTALS [Concomitant]
     Indication: CYSTITIS
     Route: 048
     Dates: start: 20111001

REACTIONS (7)
  - DRUG SPECIFIC ANTIBODY PRESENT [None]
  - ESCHERICHIA TEST POSITIVE [None]
  - MUSCLE SPASMS [None]
  - CYSTITIS [None]
  - NYSTAGMUS [None]
  - URINE ODOUR ABNORMAL [None]
  - CENTRAL NERVOUS SYSTEM LESION [None]
